FAERS Safety Report 19190435 (Version 1)
Quarter: 2021Q2

REPORT INFORMATION
  Report Type: Spontaneous
  Country: US (occurrence: US)
  Receive Date: 20210428
  Receipt Date: 20210428
  Transmission Date: 20210717
  Serious: No
  Sender: FDA-Public Use
  Company Number: US-PFIZER INC-2021364213

PATIENT
  Age: 71 Year
  Sex: Female

DRUGS (15)
  1. CALCIUM D3 [Concomitant]
     Active Substance: CALCIUM\CHOLECALCIFEROL
  2. LEXAPRO [Concomitant]
     Active Substance: ESCITALOPRAM OXALATE
  3. PROBIOTIC 4 [Concomitant]
  4. OXY?L [Concomitant]
  5. BACTRIM DS [Concomitant]
     Active Substance: SULFAMETHOXAZOLE\TRIMETHOPRIM
  6. PHENERGAN DM [Concomitant]
     Active Substance: DEXTROMETHORPHAN HYDROBROMIDE\PROMETHAZINE HYDROCHLORIDE
  7. ACIDOPHILUS [Concomitant]
     Active Substance: LACTOBACILLUS ACIDOPHILUS
  8. WELLBUTRIN XL [Concomitant]
     Active Substance: BUPROPION HYDROCHLORIDE
  9. LYRICA [Suspect]
     Active Substance: PREGABALIN
     Dosage: UNK
  10. BIOTIN [Concomitant]
     Active Substance: BIOTIN
  11. DULCOLAXO [Concomitant]
     Active Substance: BISACODYL
  12. COLACE [Concomitant]
     Active Substance: DOCUSATE SODIUM
  13. CARAFATE [Concomitant]
     Active Substance: SUCRALFATE
  14. XIIDRA [Concomitant]
     Active Substance: LIFITEGRAST
  15. VITAMIN C ACID [Concomitant]
     Active Substance: ASCORBIC ACID

REACTIONS (1)
  - Drug ineffective [Unknown]
